FAERS Safety Report 9405516 (Version 2)
Quarter: 2013Q3

REPORT INFORMATION
  Report Type: Spontaneous
  Country: US (occurrence: US)
  Receive Date: 20130717
  Receipt Date: 20130719
  Transmission Date: 20140515
  Serious: No
  Sender: FDA-Public Use
  Company Number: US-009507513-1307USA007735

PATIENT
  Sex: Female

DRUGS (1)
  1. DULERA [Suspect]
     Dosage: UNK

REACTIONS (4)
  - Drug dose omission [Unknown]
  - Extra dose administered [Unknown]
  - Product quality issue [Unknown]
  - No adverse event [Unknown]
